FAERS Safety Report 7444224-8 (Version None)
Quarter: 2011Q2

REPORT INFORMATION
  Report Type: 
  Country: None (occurrence: None)
  Receive Date: 20110429
  Receipt Date: 20101109
  Transmission Date: 20111010
  Serious: Yes (Hospitalization)
  Sender: FDA-Public Use
  Company Number: US-BAYER-201029823NA

PATIENT
  Age: 29 Year
  Sex: Female
  Weight: 99 kg

DRUGS (8)
  1. ACETAMINOPHEN [Concomitant]
     Dosage: UNK
     Dates: start: 20051005
  2. XANAX [Concomitant]
     Indication: ANXIETY
     Dosage: UNK
     Dates: start: 20050101
  3. YASMIN [Suspect]
     Indication: ACNE
  4. YAZ [Suspect]
     Indication: ACNE
  5. MOTRIN [Concomitant]
     Dosage: UNK
     Dates: start: 20051001
  6. AZITHROMYCIN [Concomitant]
  7. YASMIN [Suspect]
     Indication: CONTRACEPTION
     Dosage: UNK UNK, UNK
     Route: 048
     Dates: start: 20050401, end: 20051001
  8. YAZ [Suspect]
     Indication: CONTRACEPTION
     Dosage: UNK UNK, UNK
     Route: 048
     Dates: start: 20050101

REACTIONS (6)
  - CHEST DISCOMFORT [None]
  - CHEST PAIN [None]
  - DYSPNOEA [None]
  - BACK PAIN [None]
  - PULMONARY EMBOLISM [None]
  - MENTAL DISORDER [None]
